FAERS Safety Report 17669882 (Version 1)
Quarter: 2020Q2

REPORT INFORMATION
  Report Type: Spontaneous
  Country: US (occurrence: US)
  Receive Date: 20200415
  Receipt Date: 20200415
  Transmission Date: 20200713
  Serious: Yes (Other)
  Sender: FDA-Public Use
  Company Number: US-PFIZER INC-2020155160

PATIENT
  Age: 81 Year
  Sex: Female

DRUGS (1)
  1. XELJANZ [Suspect]
     Active Substance: TOFACITINIB CITRATE
     Dosage: 5 MG, UNK
     Dates: start: 20160426

REACTIONS (8)
  - Osteomyelitis [Unknown]
  - Product dose omission [Unknown]
  - Somnolence [Recovered/Resolved]
  - Pain [Unknown]
  - Product use issue [Unknown]
  - Disease recurrence [Unknown]
  - Product confusion [Unknown]
  - Cyst [Unknown]

NARRATIVE: CASE EVENT DATE: 202004
